FAERS Safety Report 7069204-6 (Version None)
Quarter: 2010Q4

REPORT INFORMATION
  Report Type: 
  Country: None (occurrence: None)
  Receive Date: 20101028
  Receipt Date: 20101025
  Transmission Date: 20110411
  Serious: Yes (Other)
  Sender: FDA-Public Use
  Company Number: B0681019A

PATIENT
  Sex: Female

DRUGS (13)
  1. CLAMOXYL [Suspect]
     Indication: BRONCHITIS
     Dosage: 1000MG TWICE PER DAY
     Route: 048
     Dates: start: 20100115, end: 20100125
  2. SEROPRAM [Suspect]
     Indication: DEPRESSION
     Dosage: 20MG PER DAY
     Route: 048
     Dates: start: 20091230, end: 20100118
  3. ATHYMIL [Concomitant]
     Indication: DEPRESSION
     Route: 048
     Dates: start: 20091221, end: 20100118
  4. TERCIAN [Concomitant]
     Indication: DEPRESSION
     Route: 048
     Dates: start: 20100105, end: 20100107
  5. MEPRONIZINE [Concomitant]
     Indication: INSOMNIA
     Dosage: 1UNIT PER DAY
     Route: 048
     Dates: start: 20100107
  6. CRESTOR [Concomitant]
     Dosage: 5MG PER DAY
     Route: 048
     Dates: start: 20090101, end: 20100122
  7. NEXIUM [Concomitant]
     Dosage: 20MG PER DAY
     Route: 048
  8. STILNOX [Concomitant]
     Indication: INSOMNIA
     Dates: start: 20091101
  9. NOCTRAN [Concomitant]
     Indication: INSOMNIA
  10. TRANXENE [Concomitant]
     Indication: ANXIETY
  11. ATENOLOL [Concomitant]
     Indication: HYPERTENSION
  12. LEVOTHYROXINE SODIUM [Concomitant]
     Indication: HYPOTHYROIDISM
  13. SEROPLEX [Concomitant]
     Route: 042
     Dates: start: 20091220, end: 20091230

REACTIONS (1)
  - HEPATOCELLULAR INJURY [None]
